FAERS Safety Report 15984239 (Version 2)
Quarter: 2023Q2

REPORT INFORMATION
  Report Type: Spontaneous
  Country: FR (occurrence: FR)
  Receive Date: 20190219
  Receipt Date: 20230620
  Transmission Date: 20230722
  Serious: Yes (Life-Threatening, Hospitalization, Other)
  Sender: FDA-Public Use
  Company Number: FR-AUROBINDO-AUR-APL-2019-004817

PATIENT
  Age: 45 Year
  Sex: Female
  Weight: 119 kg

DRUGS (15)
  1. MEROPENEM [Suspect]
     Active Substance: MEROPENEM
     Indication: Meningitis meningococcal
     Dosage: 2 GRAM, 3 TIMES A DAY (2GX3)
     Route: 042
     Dates: start: 20181126, end: 20181228
  2. MEROPENEM [Suspect]
     Active Substance: MEROPENEM
     Dosage: 2 GRAM, UNK
     Route: 042
     Dates: start: 20181127, end: 20190105
  3. MEROPENEM [Suspect]
     Active Substance: MEROPENEM
     Dosage: 2 GRAM, TWO TIMES A DAY (2 G, BID)
     Route: 042
     Dates: start: 20181229, end: 20190105
  4. FOSFOMYCIN [Suspect]
     Active Substance: FOSFOMYCIN
     Indication: Meningitis meningococcal
     Dosage: 4 GRAM, 4 G*4
     Route: 042
     Dates: start: 20181229, end: 20190101
  5. FOSFOMYCIN [Suspect]
     Active Substance: FOSFOMYCIN
     Dosage: 4 GRAM, 4 G*2
     Route: 042
     Dates: start: 20190102, end: 20190107
  6. FOSFOMYCIN [Suspect]
     Active Substance: FOSFOMYCIN
     Dosage: 4 GRAM, 4 G*4
     Route: 042
     Dates: start: 20190108, end: 20190108
  7. FERROUS SULFATE [Concomitant]
     Active Substance: FERROUS SULFATE
     Indication: Iron deficiency
     Dosage: 80 MILLIGRAM, 80 MGX2/J
     Route: 048
     Dates: start: 20181121, end: 20190102
  8. PANTOPRAZOLE [Concomitant]
     Active Substance: PANTOPRAZOLE
     Indication: Prophylaxis
     Dosage: 20 MILLIGRAM/J
     Route: 048
     Dates: start: 20181020, end: 20181113
  9. PANTOPRAZOLE [Concomitant]
     Active Substance: PANTOPRAZOLE
     Indication: Prophylaxis against gastrointestinal ulcer
     Dosage: 20 MILLIGRAM/J
     Route: 048
     Dates: start: 20181116, end: 20181230
  10. PANTOPRAZOLE [Concomitant]
     Active Substance: PANTOPRAZOLE
     Dosage: 40 MILLIGRAM
     Route: 048
     Dates: start: 20181121, end: 20190101
  11. VANCOMYCIN [Concomitant]
     Active Substance: VANCOMYCIN
     Indication: Meningitis meningococcal
     Dosage: UNK
     Route: 042
     Dates: start: 20181126, end: 20181228
  12. VANCOMYCIN [Concomitant]
     Active Substance: VANCOMYCIN
     Dosage: UNK
     Route: 042
     Dates: start: 20181127, end: 20181228
  13. COLISTIN [Concomitant]
     Active Substance: COLISTIN
     Indication: Product used for unknown indication
     Dosage: UNK
     Route: 065
     Dates: start: 20190108
  14. AZTREONAM [Concomitant]
     Active Substance: AZTREONAM
     Indication: Product used for unknown indication
     Dosage: UNK
     Route: 065
     Dates: start: 20190108
  15. FILGRASTIM [Concomitant]
     Active Substance: FILGRASTIM
     Indication: Product used for unknown indication
     Dosage: UNK(48 MUI)
     Route: 065
     Dates: start: 20190105

REACTIONS (7)
  - Drug reaction with eosinophilia and systemic symptoms [Recovered/Resolved]
  - Erythema [Recovering/Resolving]
  - Pruritus [Recovering/Resolving]
  - Oedema [Recovering/Resolving]
  - Skin exfoliation [Recovering/Resolving]
  - Agranulocytosis [Recovered/Resolved]
  - Rash [Unknown]

NARRATIVE: CASE EVENT DATE: 20181222
